FAERS Safety Report 7340897-9 (Version None)
Quarter: 2011Q1

REPORT INFORMATION
  Report Type: 
  Country: None (occurrence: None)
  Receive Date: 20110309
  Receipt Date: 20100416
  Transmission Date: 20110831
  Serious: No
  Sender: FDA-Public Use
  Company Number: US-ABBOTT-10P-163-0639850-00

PATIENT
  Sex: Female

DRUGS (6)
  1. CYMBALTA [Concomitant]
     Indication: DEPRESSION
  2. CYMBALTA [Concomitant]
     Indication: PAIN
  3. LUPRON DEPOT [Suspect]
     Dates: start: 20100201
  4. LUPRON DEPOT [Suspect]
     Indication: ENDOMETRIOSIS
     Dates: start: 20080101, end: 20080101
  5. ULTRAM [Concomitant]
     Indication: PAIN
  6. MELATONIN [Concomitant]
     Indication: INSOMNIA

REACTIONS (2)
  - ACNE [None]
  - HOT FLUSH [None]
